FAERS Safety Report 9840965 (Version 1)
Quarter: 2014Q1

REPORT INFORMATION
  Report Type: Spontaneous
  Country: US (occurrence: None)
  Receive Date: 20140123
  Receipt Date: 20140123
  Transmission Date: 20141002
  Serious: Yes (Death)
  Sender: FDA-Public Use
  Company Number: None

PATIENT
  Age: 57 Year
  Sex: Female
  Weight: 93.7 kg

DRUGS (18)
  1. ZANAMIVIR [Suspect]
     Indication: INFLUENZA
     Route: 042
     Dates: start: 20140115, end: 20140118
  2. ACETAMINOPHEN-HYDROCODONE [Concomitant]
  3. ASPIRIN [Concomitant]
  4. DOXYCYCLINE [Concomitant]
  5. FAMOTIDINE [Concomitant]
  6. HEPARIN [Concomitant]
  7. LEVOFLOXACIN [Concomitant]
  8. MAGNESIUM SULFATE [Concomitant]
  9. MEROPENEM [Concomitant]
  10. METHIMAZOLE [Concomitant]
  11. METOPROLOL [Concomitant]
  12. MIDAZOLAM [Concomitant]
  13. MORPHINE [Concomitant]
  14. ONDANSETRON [Concomitant]
  15. OSELTAMIVIR [Concomitant]
  16. PROMETHAZINE [Concomitant]
  17. ALBUTEROL [Concomitant]
  18. IPRATROPIUM [Concomitant]

REACTIONS (2)
  - General physical health deterioration [None]
  - Refusal of treatment by relative [None]
